FAERS Safety Report 18165834 (Version 1)
Quarter: 2020Q3

REPORT INFORMATION
  Report Type: Spontaneous
  Country: GB (occurrence: GB)
  Receive Date: 20200818
  Receipt Date: 20200818
  Transmission Date: 20201103
  Serious: Yes (Hospitalization, Other)
  Sender: FDA-Public Use
  Company Number: GB-MYLANLABS-2020M1071393

PATIENT
  Age: 71 Year
  Sex: Male
  Weight: 114.3 kg

DRUGS (5)
  1. TAMSULOSIN [Suspect]
     Active Substance: TAMSULOSIN
     Indication: PROSTATOMEGALY
     Dosage: 1 DOSAGE FORM, QD
     Route: 048
     Dates: start: 20191101, end: 20191222
  2. COCODAMOL [Concomitant]
     Active Substance: ACETAMINOPHEN\CODEINE PHOSPHATE
     Dosage: UNK
  3. LERCANIDIPINE [Concomitant]
     Active Substance: LERCANIDIPINE
     Dosage: UNK
  4. PARACETAMOL [Concomitant]
     Active Substance: ACETAMINOPHEN
     Dosage: UNK
  5. OMEPRAZOLE. [Concomitant]
     Active Substance: OMEPRAZOLE
     Dosage: UNK

REACTIONS (11)
  - Biliary tract disorder [Unknown]
  - Faeces discoloured [Unknown]
  - Ocular icterus [Unknown]
  - Gallbladder disorder [Unknown]
  - Abdominal pain upper [Recovered/Resolved]
  - Yellow skin [Unknown]
  - Muscle spasms [Unknown]
  - Chromaturia [Unknown]
  - Abdominal discomfort [Recovered/Resolved]
  - Liver disorder [Unknown]
  - Pruritus [Unknown]

NARRATIVE: CASE EVENT DATE: 20191222
